FAERS Safety Report 10616970 (Version 1)
Quarter: 2014Q4

REPORT INFORMATION
  Report Type: Spontaneous
  Country: US (occurrence: None)
  Receive Date: 20141121
  Receipt Date: 20141121
  Transmission Date: 20150529
  Serious: Yes (Hospitalization)
  Sender: FDA-Public Use
  Company Number: A-US2014-95672

PATIENT
  Age: 83 Year
  Sex: Female

DRUGS (2)
  1. REVATIO (SILDENAFIL CITRATE) [Concomitant]
  2. VENTAVIS [Suspect]
     Active Substance: ILOPROST
     Indication: PULMONARY ARTERIAL HYPERTENSION
     Dosage: 5 UG, 3-6X DAILY, RESPIRATORY
     Route: 055
     Dates: start: 20130929

REACTIONS (1)
  - Fluid overload [None]
